FAERS Safety Report 5837591-X (Version None)
Quarter: 2008Q3

REPORT INFORMATION
  Report Type: 
  Country: None (occurrence: None)
  Receive Date: 20080807
  Receipt Date: 20080729
  Transmission Date: 20090109
  Serious: Yes (Death)
  Sender: FDA-Public Use
  Company Number: DE-AMGEN-UK298272

PATIENT
  Age: 70 Year
  Sex: Male

DRUGS (2)
  1. KINERET [Suspect]
     Indication: RHEUMATOID ARTHRITIS
     Dates: start: 20030601
  2. METHOTREXATE [Concomitant]
     Dates: start: 20060601

REACTIONS (2)
  - CARDIAC FAILURE ACUTE [None]
  - PNEUMONIA [None]
